FAERS Safety Report 12719180 (Version 2)
Quarter: 2016Q4

REPORT INFORMATION
  Report Type: Spontaneous
  Country: US (occurrence: US)
  Receive Date: 20160907
  Receipt Date: 20161031
  Transmission Date: 20170207
  Serious: No
  Sender: FDA-Public Use
  Company Number: US-JNJFOC-20160811547

PATIENT
  Age: 43 Year
  Sex: Female

DRUGS (1)
  1. DURAGESIC [Suspect]
     Active Substance: FENTANYL
     Indication: PAIN
     Dosage: IN THE WEEK OF 08-AUG-2016 OR POSSIBLE ON 11-AUG-2016
     Route: 062
     Dates: start: 201608

REACTIONS (3)
  - Product quality issue [Unknown]
  - Underdose [Unknown]
  - Hyperhidrosis [Unknown]

NARRATIVE: CASE EVENT DATE: 201608
